FAERS Safety Report 15034196 (Version 1)
Quarter: 2018Q2

REPORT INFORMATION
  Report Type: Spontaneous
  Country: US (occurrence: US)
  Receive Date: 20180620
  Receipt Date: 20180620
  Transmission Date: 20180711
  Serious: No
  Sender: FDA-Public Use
  Company Number: US-TEVA-2017-US-838625

PATIENT
  Sex: Female

DRUGS (1)
  1. PREDNISONE. [Suspect]
     Active Substance: PREDNISONE

REACTIONS (2)
  - Circumstance or information capable of leading to medication error [Unknown]
  - Intercepted drug dispensing error [Unknown]

NARRATIVE: CASE EVENT DATE: 20171218
